FAERS Safety Report 20313127 (Version 2)
Quarter: 2022Q1

REPORT INFORMATION
  Report Type: Spontaneous
  Country: FR (occurrence: FR)
  Receive Date: 20220109
  Receipt Date: 20220121
  Transmission Date: 20220423
  Serious: Yes (Life-Threatening, Hospitalization, Other)
  Sender: FDA-Public Use
  Company Number: FR-MACLEODS PHARMACEUTICALS US LTD-MAC2021034014

PATIENT

DRUGS (12)
  1. TRAMADOL [Suspect]
     Active Substance: TRAMADOL
     Indication: Pain
     Dosage: 225 MILLIGRAM, QD
     Route: 065
  2. SERTRALINE [Suspect]
     Active Substance: SERTRALINE HYDROCHLORIDE
     Indication: Anxiolytic therapy
     Dosage: 50 MILLIGRAM, QD
     Route: 065
  3. VALPROATE SODIUM [Concomitant]
     Active Substance: VALPROATE SODIUM
     Indication: Epilepsy
     Dosage: 1250 MILLIGRAM, QD
     Route: 065
  4. DIAZEPAM [Concomitant]
     Active Substance: DIAZEPAM
     Indication: Epilepsy
     Dosage: 1166 MILLIGRAM, QD
     Route: 065
  5. MELATONIN [Concomitant]
     Active Substance: MELATONIN
     Indication: Sleep disorder
     Dosage: 12 MILLIGRAM, QD
     Route: 065
  6. Sodium alginate/sodium hydrogen bicarbonate [Concomitant]
     Indication: Gastric disorder
     Dosage: 3 DOSAGE FORM, QD; 3 TABLETS/D
     Route: 065
  7. Sodium alginate/sodium hydrogen bicarbonate [Concomitant]
     Indication: Abdominal pain
  8. LANSOPRAZOLE [Concomitant]
     Active Substance: LANSOPRAZOLE
     Indication: Abdominal pain
     Dosage: 30 MILLIGRAM, QD
     Route: 065
  9. LANSOPRAZOLE [Concomitant]
     Active Substance: LANSOPRAZOLE
     Indication: Gastric disorder
  10. PHLOROGLUCINOL [Concomitant]
     Active Substance: PHLOROGLUCINOL
     Indication: Abdominal pain
     Dosage: 480 MILLIGRAM, QD
     Route: 065
  11. PHLOROGLUCINOL [Concomitant]
     Active Substance: PHLOROGLUCINOL
     Indication: Gastric disorder
  12. POLYETHYLENE GLYCOLS [Concomitant]
     Active Substance: POLYETHYLENE GLYCOLS
     Indication: Colonic lavage
     Dosage: UNK
     Route: 065

REACTIONS (12)
  - Rhabdomyolysis [Recovered/Resolved]
  - Restlessness [Recovered/Resolved]
  - Hyperthermia [Recovered/Resolved]
  - Diarrhoea [Recovered/Resolved]
  - Liver disorder [Recovered/Resolved]
  - Myocardial injury [Recovered/Resolved]
  - Serotonin syndrome [Recovered/Resolved]
  - Agitation [Recovered/Resolved]
  - Coma [Recovered/Resolved]
  - Tachycardia [Recovered/Resolved]
  - Chills [Recovered/Resolved]
  - Overdose [Recovered/Resolved]
